FAERS Safety Report 6839854-8 (Version None)
Quarter: 2010Q2

REPORT INFORMATION
  Report Type: 
  Country: None (occurrence: None)
  Receive Date: 20100629
  Receipt Date: 20100426
  Transmission Date: 20101027
  Serious: No
  Sender: FDA-Public Use
  Company Number: US-WYE-H14831710

PATIENT
  Age: 49 Year
  Sex: Female
  Weight: 102.15 kg

DRUGS (7)
  1. PRISTIQ [Suspect]
     Indication: DEPRESSION
     Dosage: 50 MG 1X PER 1 DAY, ORAL
     Route: 048
     Dates: start: 20090701, end: 20100101
  2. PRISTIQ [Suspect]
     Dosage: 50 MG 1X PER 1 DAY, ORAL
     Route: 048
     Dates: start: 20100101
  3. PRISTIQ [Suspect]
     Dosage: STARTED TAPERING OFF OF PRISTIQ BY TAKING 50MG ALTERNATING WITH 25 MG DAILY, ORAL
     Route: 048
     Dates: start: 20100101
  4. AMBIEN [Concomitant]
  5. XANAX [Concomitant]
  6. ALLEGRA [Concomitant]
  7. PROAIR HFA [Concomitant]

REACTIONS (6)
  - ACTIVITIES OF DAILY LIVING IMPAIRED [None]
  - CONFUSIONAL STATE [None]
  - DRUG WITHDRAWAL SYNDROME [None]
  - FEELING ABNORMAL [None]
  - SOMNOLENCE [None]
  - WRONG TECHNIQUE IN DRUG USAGE PROCESS [None]
